FAERS Safety Report 9604272 (Version 4)
Quarter: 2013Q4

REPORT INFORMATION
  Report Type: Report from Study
  Country: US (occurrence: US)
  Receive Date: 20131008
  Receipt Date: 20131118
  Transmission Date: 20140711
  Serious: Yes (Hospitalization)
  Sender: FDA-Public Use
  Company Number: PHHO2011US08052

PATIENT
  Age: 39 Year
  Sex: Female
  Weight: 100.68 kg

DRUGS (1)
  1. SOM230 [Suspect]
     Indication: NEUROENDOCRINE TUMOUR
     Dosage: 60 MG ONCE EVERY 28 DAYS
     Route: 030
     Dates: start: 20100921, end: 20110405

REACTIONS (5)
  - Pharyngitis streptococcal [Recovered/Resolved]
  - Sepsis syndrome [Recovered/Resolved]
  - Hypokalaemia [Recovered/Resolved]
  - Dehydration [Recovered/Resolved]
  - Type 2 diabetes mellitus [Recovered/Resolved]
